FAERS Safety Report 16151884 (Version 2)
Quarter: 2019Q3

REPORT INFORMATION
  Report Type: Spontaneous
  Country: DE (occurrence: DE)
  Receive Date: 20190403
  Receipt Date: 20190830
  Transmission Date: 20191004
  Serious: Yes (Hospitalization, Other)
  Sender: FDA-Public Use
  Company Number: DE-AUROBINDO-AUR-APL-2019-017156

PATIENT

DRUGS (6)
  1. MYCOBUTIN [Concomitant]
     Active Substance: RIFABUTIN
     Indication: PRODUCT USED FOR UNKNOWN INDICATION
     Dosage: 2 X 1 KAPSEL, 150 MG
     Route: 048
     Dates: start: 20190227, end: 20190308
  2. LEVOFLOXACIN PUREN 5 MG/ML SOLUTION FOR INFUSION [Suspect]
     Active Substance: LEVOFLOXACIN
     Indication: HELICOBACTER GASTRITIS
     Dosage: 500 MG PRO TAG (10 TAGE),JE 1 X 1 100 ML INFUSIONEN MIT 500 MG LEVOFLOXACIN
     Route: 042
     Dates: start: 20190227, end: 20190308
  3. PANTOPRAZOL [Concomitant]
     Active Substance: PANTOPRAZOLE SODIUM
     Dosage: 2 INFUSIONEN PRO TAG
     Route: 042
     Dates: start: 20190226, end: 20190308
  4. MYCOBUTIN [Concomitant]
     Active Substance: RIFABUTIN
     Dosage: 2 X 1 KAPSEL, 150 MG
     Route: 048
     Dates: start: 20190226, end: 20190308
  5. LEVOFLOXACIN PUREN 5 MG/ML SOLUTION FOR INFUSION [Suspect]
     Active Substance: LEVOFLOXACIN
     Indication: ANTIBIOTIC THERAPY
     Dosage: 500 MG PRO TAG (10 TAGE),JE 1 X 1 100 ML INFUSIONEN MIT 500 MG LEVOFLOXACIN
     Route: 042
     Dates: start: 20190226, end: 20190308
  6. PANTOPRAZOL [Concomitant]
     Active Substance: PANTOPRAZOLE SODIUM
     Indication: PRODUCT USED FOR UNKNOWN INDICATION
     Dosage: 2 INFUSIONEN PRO TAG
     Route: 042
     Dates: start: 20190227, end: 20190308

REACTIONS (28)
  - Impaired work ability [Unknown]
  - Somnolence [Not Recovered/Not Resolved]
  - Hyperaesthesia [Unknown]
  - Mobility decreased [Unknown]
  - Leukopenia [Not Recovered/Not Resolved]
  - Pain [Not Recovered/Not Resolved]
  - Restlessness [Unknown]
  - Eye pruritus [Not Recovered/Not Resolved]
  - Rash [Not Recovered/Not Resolved]
  - Sensation of foreign body [Recovered/Resolved]
  - Abdominal discomfort [Unknown]
  - Decreased appetite [Unknown]
  - Asthenia [Not Recovered/Not Resolved]
  - Nausea [Not Recovered/Not Resolved]
  - Sleep disorder [Unknown]
  - Feeling cold [Unknown]
  - Thrombocytopenia [Not Recovered/Not Resolved]
  - Headache [Not Recovered/Not Resolved]
  - Neuralgia [Not Recovered/Not Resolved]
  - Blood creatinine abnormal [Not Recovered/Not Resolved]
  - Myalgia [Not Recovered/Not Resolved]
  - Cardiovascular disorder [Unknown]
  - Restless legs syndrome [Unknown]
  - Dizziness [Not Recovered/Not Resolved]
  - Tendon discomfort [Not Recovered/Not Resolved]
  - Vomiting [Not Recovered/Not Resolved]
  - Renal pain [Not Recovered/Not Resolved]
  - Rash pruritic [Unknown]

NARRATIVE: CASE EVENT DATE: 2019
